FAERS Safety Report 4775696-5 (Version None)
Quarter: 2005Q3

REPORT INFORMATION
  Report Type: 
  Country: None (occurrence: None)
  Receive Date: 20050921
  Receipt Date: 20050907
  Transmission Date: 20060218
  Serious: Yes (Death)
  Sender: FDA-Public Use
  Company Number: 2005S1005906

PATIENT
  Age: 69 Year
  Sex: Male

DRUGS (8)
  1. FENTANYL [Suspect]
     Indication: BACK PAIN
     Dosage: 25 MCG/HR; Q3D; TDER; 50 MCG/HR;Q3D;TDER
     Route: 062
     Dates: start: 20050630, end: 20050707
  2. FENTANYL [Suspect]
     Indication: PAIN IN EXTREMITY
     Dosage: 25 MCG/HR; Q3D; TDER; 50 MCG/HR;Q3D;TDER
     Route: 062
     Dates: start: 20050630, end: 20050707
  3. FENTANYL [Suspect]
     Indication: BACK PAIN
     Dosage: 25 MCG/HR; Q3D; TDER; 50 MCG/HR;Q3D;TDER
     Route: 062
     Dates: start: 20050708, end: 20050708
  4. FENTANYL [Suspect]
     Indication: PAIN IN EXTREMITY
     Dosage: 25 MCG/HR; Q3D; TDER; 50 MCG/HR;Q3D;TDER
     Route: 062
     Dates: start: 20050708, end: 20050708
  5. LEVOTHYROXINE SODIUM [Concomitant]
  6. DILTIAZEM [Concomitant]
  7. FUROSEMIDE [Concomitant]
  8. POTASSIUM CHLORIDE [Concomitant]

REACTIONS (6)
  - COMA [None]
  - DRUG WITHDRAWAL SYNDROME [None]
  - HALLUCINATION [None]
  - HYPERHIDROSIS [None]
  - RESPIRATORY ARREST [None]
  - SOMNOLENCE [None]
